FAERS Safety Report 24050442 (Version 3)
Quarter: 2024Q3

REPORT INFORMATION
  Report Type: Spontaneous
  Country: US (occurrence: US)
  Receive Date: 20240704
  Receipt Date: 20240709
  Transmission Date: 20241016
  Serious: Yes (Death)
  Sender: ROCHE
  Company Number: US-ROCHE-10000012997

PATIENT
  Sex: Male

DRUGS (15)
  1. ERIVEDGE [Suspect]
     Active Substance: VISMODEGIB
     Indication: Basal cell carcinoma
     Route: 048
     Dates: start: 20230815
  2. POTASSIUM CHLORIDE [Concomitant]
     Active Substance: POTASSIUM CHLORIDE
     Dosage: ONE HALF OF A 20MEQ TABLET TWICE DAILY
     Route: 048
     Dates: start: 20240130
  3. ATORVASTATIN [Concomitant]
     Active Substance: ATORVASTATIN
     Dosage: AT BEDTIME
     Route: 048
     Dates: start: 20220915
  4. ELIQUIS [Concomitant]
     Active Substance: APIXABAN
     Route: 048
     Dates: start: 20230213
  5. ENTRESTO [Concomitant]
     Active Substance: SACUBITRIL\VALSARTAN
     Dosage: DOSE REPORTED AS 49-51MG
     Route: 048
     Dates: start: 20230313
  6. ENTRESTO [Concomitant]
     Active Substance: SACUBITRIL\VALSARTAN
     Dosage: DOSE REPORTED AS 49-51MG
     Route: 048
     Dates: start: 20230313
  7. FUROSEMIDE [Concomitant]
     Active Substance: FUROSEMIDE
     Indication: Fluid retention
     Route: 048
     Dates: start: 20230209
  8. METOPROLOL [Concomitant]
     Active Substance: METOPROLOL
     Indication: Hypertension
     Route: 048
     Dates: start: 20230209
  9. TYLENOL [Concomitant]
     Active Substance: ACETAMINOPHEN
     Indication: Pain
     Dosage: ONE TO TWO TABLETS EVERY FOUR TO SIX HOURS AS NEEDED
     Route: 048
     Dates: start: 20230804
  10. HUMALOG [Concomitant]
     Active Substance: INSULIN LISPRO
     Indication: Diabetes mellitus
     Dosage: IF BLOOD SUGAR GREATER THAN 150
     Route: 058
     Dates: start: 20240206
  11. HUMALOG [Concomitant]
     Active Substance: INSULIN LISPRO
     Dosage: IF BLOOD SUGAR GREATER THAN 200
     Route: 058
     Dates: start: 20240206
  12. HUMALOG [Concomitant]
     Active Substance: INSULIN LISPRO
     Dosage: IF BLOOD SUGAR IS GREATER THAN 250
     Route: 058
     Dates: start: 20240206
  13. HUMALOG [Concomitant]
     Active Substance: INSULIN LISPRO
     Dosage: IF BLOOD SUGAR GREATER THAN 300
     Route: 058
  14. HUMALOG [Concomitant]
     Active Substance: INSULIN LISPRO
     Dosage: IF BLOOD SUGAR GREATER THAN 350
     Route: 058
     Dates: start: 20240206
  15. LANTUS [Concomitant]
     Active Substance: INSULIN GLARGINE
     Indication: Diabetes mellitus
     Dosage: AT BEDTIME
     Route: 058

REACTIONS (2)
  - Death [Fatal]
  - Diabetes mellitus [Unknown]
